FAERS Safety Report 12612387 (Version 1)
Quarter: 2016Q3

REPORT INFORMATION
  Report Type: Spontaneous
  Country: US (occurrence: US)
  Receive Date: 20160801
  Receipt Date: 20160801
  Transmission Date: 20161109
  Serious: Yes (Other)
  Sender: FDA-Public Use
  Company Number: US-TEVA-679302USA

PATIENT
  Sex: Female
  Weight: 56.75 kg

DRUGS (7)
  1. LYRICA [Suspect]
     Active Substance: PREGABALIN
     Indication: NEURALGIA
     Dosage: 150 MILLIGRAM DAILY;
     Route: 048
     Dates: start: 201606
  2. MYRBETRIQ [Concomitant]
     Active Substance: MIRABEGRON
     Indication: URINARY INCONTINENCE
     Dosage: 75 MILLIGRAM DAILY;
     Route: 048
     Dates: start: 201502
  3. CLONAZEPAM. [Concomitant]
     Active Substance: CLONAZEPAM
     Indication: ANXIETY
     Dosage: 4 MILLIGRAM DAILY;
     Route: 048
     Dates: start: 2008
  4. METOPROLOL. [Concomitant]
     Active Substance: METOPROLOL
     Indication: ANXIETY
     Dosage: 25 MILLIGRAM DAILY;
     Route: 048
     Dates: start: 201504
  5. TIZANIDINE. [Concomitant]
     Active Substance: TIZANIDINE
     Dosage: AS NEEDED
     Route: 048
     Dates: start: 201502
  6. COPAXONE [Suspect]
     Active Substance: GLATIRAMER ACETATE
     Indication: MULTIPLE SCLEROSIS
     Dosage: 20 MILLIGRAM DAILY;
     Route: 030
     Dates: start: 2008
  7. PRISTIQ EXTENDED-RELEASE [Suspect]
     Active Substance: DESVENLAFAXINE SUCCINATE
     Indication: MAJOR DEPRESSION
     Route: 048
     Dates: start: 2015

REACTIONS (5)
  - Multiple sclerosis [Not Recovered/Not Resolved]
  - Depression [Unknown]
  - Anxiety [Not Recovered/Not Resolved]
  - Depression [Not Recovered/Not Resolved]
  - Incorrect route of drug administration [Unknown]
